FAERS Safety Report 16404331 (Version 1)
Quarter: 2019Q3

REPORT INFORMATION
  Report Type: Spontaneous
  Country: US (occurrence: US)
  Receive Date: 20190606
  Receipt Date: 20190606
  Transmission Date: 20191004
  Serious: Yes (Other)
  Sender: FDA-Public Use
  Company Number: None

PATIENT
  Age: 52 Year
  Sex: Female
  Weight: 46.35 kg

DRUGS (3)
  1. HYDROCODONE/ACETAMINOPHEN  10/325 MG [Suspect]
     Active Substance: ACETAMINOPHEN\HYDROCODONE
     Indication: ANAEMIA
     Route: 048
  2. HYDROCODONE/ACETAMINOPHEN  10/325 MG [Suspect]
     Active Substance: ACETAMINOPHEN\HYDROCODONE
     Indication: SYSTEMIC LUPUS ERYTHEMATOSUS
     Route: 048
  3. HYDROCODONE/ACETAMINOPHEN  10/325 MG [Suspect]
     Active Substance: ACETAMINOPHEN\HYDROCODONE
     Indication: INTERVERTEBRAL DISC DEGENERATION
     Route: 048

REACTIONS (5)
  - Drug ineffective [None]
  - Product substitution issue [None]
  - Tinnitus [None]
  - Headache [None]
  - Head discomfort [None]

NARRATIVE: CASE EVENT DATE: 20190601
